FAERS Safety Report 7315009-8 (Version None)
Quarter: 2011Q1

REPORT INFORMATION
  Report Type: 
  Country: None (occurrence: None)
  Receive Date: 20110217
  Receipt Date: 20110217
  Transmission Date: 20110831
  Serious: Yes (Hospitalization)
  Sender: FDA-Public Use
  Company Number: None

PATIENT
  Sex: Female
  Weight: 65.7716 kg

DRUGS (1)
  1. FOSAMAX [Suspect]
     Indication: OSTEOPENIA
     Dosage: 70 MG 1 WEEK

REACTIONS (4)
  - THROMBOSIS [None]
  - HAIR GROWTH ABNORMAL [None]
  - FEMUR FRACTURE [None]
  - GAIT DISTURBANCE [None]
